FAERS Safety Report 13302800 (Version 1)
Quarter: 2017Q1

REPORT INFORMATION
  Report Type: Spontaneous
  Country: US (occurrence: US)
  Receive Date: 20170307
  Receipt Date: 20170307
  Transmission Date: 20170428
  Serious: No
  Sender: FDA-Public Use
  Company Number: US-PFIZER INC-2017092996

PATIENT
  Sex: Female

DRUGS (1)
  1. PRISTIQ EXTENDED-RELEASE [Suspect]
     Active Substance: DESVENLAFAXINE SUCCINATE
     Indication: ARTHRITIS
     Dosage: 50 MG, UNK

REACTIONS (3)
  - Wrong technique in product usage process [Unknown]
  - Lip swelling [Unknown]
  - Product use issue [Unknown]
